FAERS Safety Report 5826609-6 (Version None)
Quarter: 2008Q3

REPORT INFORMATION
  Report Type: 
  Country: None (occurrence: None)
  Receive Date: 20080730
  Receipt Date: 20080715
  Transmission Date: 20090109
  Serious: Yes (Hospitalization, Other)
  Sender: FDA-Public Use
  Company Number: US-BAYER-US-2007-043638

PATIENT
  Age: 46 Year
  Sex: Female
  Weight: 50 kg

DRUGS (28)
  1. BETASERON [Suspect]
     Indication: RELAPSING-REMITTING MULTIPLE SCLEROSIS
     Route: 058
     Dates: start: 20061204
  2. BETASERON [Suspect]
     Route: 058
     Dates: start: 20070701, end: 20071016
  3. BETASERON [Suspect]
     Route: 058
     Dates: end: 20070101
  4. BETASERON [Suspect]
     Dosage: TOTAL DAILY DOSE: 8 MIU
     Route: 058
     Dates: start: 20070204, end: 20070401
  5. BACTRIM [Concomitant]
     Dosage: TOTAL DAILY DOSE: 10 MG
  6. AMANTADINE HCL [Concomitant]
     Indication: FATIGUE
     Dosage: TOTAL DAILY DOSE: 100 MG
  7. AMANTADINE HCL [Concomitant]
     Dosage: TOTAL DAILY DOSE: 200 MG
  8. NEXIUM [Concomitant]
     Indication: GASTROOESOPHAGEAL REFLUX DISEASE
     Dosage: AS USED: 40 MG
  9. CELEXA [Concomitant]
     Dosage: TOTAL DAILY DOSE: 40 MG
  10. MECLIZINE [Concomitant]
  11. AMBIEN [Concomitant]
     Indication: INSOMNIA
     Dosage: TOTAL DAILY DOSE: 10 MG
     Dates: start: 20071113, end: 20080219
  12. AMBIEN [Concomitant]
     Dosage: TOTAL DAILY DOSE: 5 MG
     Dates: start: 20070701, end: 20071113
  13. NEURONTIN [Concomitant]
     Indication: MUSCLE SPASMS
     Dosage: TOTAL DAILY DOSE: 800 MG
  14. NEURONTIN [Concomitant]
     Dosage: TOTAL DAILY DOSE: 1200 MG
  15. NEURONTIN [Concomitant]
     Dosage: TOTAL DAILY DOSE: 600 MG
  16. BACLOFEN [Concomitant]
     Indication: MUSCLE TIGHTNESS
     Dosage: TOTAL DAILY DOSE: 20 MG
     Dates: start: 20080219
  17. BACLOFEN [Concomitant]
     Dosage: TOTAL DAILY DOSE: 20 MG
  18. BACLOFEN [Concomitant]
     Dosage: TOTAL DAILY DOSE: 40 MG
  19. CYMBALTA [Concomitant]
     Indication: DEPRESSION
     Dosage: TOTAL DAILY DOSE: 20 MG
     Dates: start: 20080219
  20. CYMBALTA [Concomitant]
     Dosage: TOTAL DAILY DOSE: 60 MG
  21. OSCAL [Concomitant]
  22. ENSURE [Concomitant]
  23. LEXAPRO [Concomitant]
     Indication: AFFECT LABILITY
     Dosage: TOTAL DAILY DOSE: 20 MG
  24. XANAX [Concomitant]
     Dosage: TOTAL DAILY DOSE: 0.5 DF
  25. IBUPROFEN [Concomitant]
     Indication: HEADACHE
     Dosage: TOTAL DAILY DOSE: 1200 MG
  26. LORATADINE [Concomitant]
     Dosage: TOTAL DAILY DOSE: 10 MG
  27. ORPHENADRINE CITRATE [Concomitant]
     Indication: HEADACHE
     Dosage: TOTAL DAILY DOSE: 100 MG
     Dates: start: 20060701
  28. CHANTIX [Concomitant]

REACTIONS (11)
  - ACTIVITIES OF DAILY LIVING IMPAIRED [None]
  - COGNITIVE DISORDER [None]
  - DIZZINESS [None]
  - DYSAESTHESIA [None]
  - GAIT DISTURBANCE [None]
  - HYPOAESTHESIA [None]
  - LEUKOPENIA [None]
  - MULTIPLE SCLEROSIS [None]
  - MUSCULOSKELETAL STIFFNESS [None]
  - PLATELET COUNT DECREASED [None]
  - WHITE BLOOD CELL COUNT DECREASED [None]
